FAERS Safety Report 4994218-7 (Version None)
Quarter: 2006Q2

REPORT INFORMATION
  Report Type: 
  Country: None (occurrence: None)
  Receive Date: 20060503
  Receipt Date: 20060420
  Transmission Date: 20061013
  Serious: No
  Sender: FDA-Public Use
  Company Number: S06-UKI-01590-02

PATIENT

DRUGS (1)
  1. CIPRAMIL                 (CITALOPRAM HYDROBROMIDE) [Suspect]
     Dosage: 20 MG QD TRANSPLACENTAL
     Route: 064

REACTIONS (2)
  - DRUG EXPOSURE DURING PREGNANCY [None]
  - PREMATURE BABY [None]
